FAERS Safety Report 5215567-3 (Version None)
Quarter: 2007Q1

REPORT INFORMATION
  Report Type: 
  Country: None (occurrence: None)
  Receive Date: 20070117
  Receipt Date: 20070111
  Transmission Date: 20070707
  Serious: Yes (Hospitalization)
  Sender: FDA-Public Use
  Company Number: 2007AL000162

PATIENT
  Age: 62 Year
  Sex: Female

DRUGS (2)
  1. CITALOPRAM HYDROBROMIDE [Suspect]
     Indication: DEPRESSION
     Dosage: 10 MG; QD; PO
     Route: 048
     Dates: start: 20061109, end: 20061214
  2. LEVOTHYROXINE SODIUM [Concomitant]

REACTIONS (5)
  - BLOOD BLISTER [None]
  - HAEMORRHAGE [None]
  - INCREASED TENDENCY TO BRUISE [None]
  - PLATELET COUNT DECREASED [None]
  - PURPURA [None]
